FAERS Safety Report 4382517-1 (Version None)
Quarter: 2004Q2

REPORT INFORMATION
  Report Type: 
  Country: None (occurrence: None)
  Receive Date: 20040609
  Receipt Date: 20040526
  Transmission Date: 20050107
  Serious: Yes (Other)
  Sender: FDA-Public Use
  Company Number: 200408996

PATIENT
  Age: 23 Year
  Sex: Female
  Weight: 79.3795 kg

DRUGS (6)
  1. GAMMAR-P I.V. [Suspect]
     Indication: THROMBOCYTOPENIA NEONATAL
     Dosage: 150 G Q1W IV
     Route: 042
     Dates: start: 20040130
  2. GAMMAR-P I.V. [Suspect]
  3. GAMMAR-P I.V. [Suspect]
  4. GAMMAR-P I.V. [Suspect]
  5. GAMMAR-P I.V. [Suspect]
  6. GAMMAR-P I.V. [Suspect]

REACTIONS (4)
  - ANTI-HBC IGG ANTIBODY POSITIVE [None]
  - ANTI-HBC IGM ANTIBODY POSITIVE [None]
  - HEPATITIS B SURFACE ANTIGEN POSITIVE [None]
  - SYPHILIS TEST POSITIVE [None]
